FAERS Safety Report 7775554-8 (Version None)
Quarter: 2011Q3

REPORT INFORMATION
  Report Type: 
  Country: None (occurrence: None)
  Receive Date: 20110923
  Receipt Date: 20110913
  Transmission Date: 20111222
  Serious: Yes (Other)
  Sender: FDA-Public Use
  Company Number: CA-JNJFOC-20110906653

PATIENT
  Sex: Female
  Weight: 59.1 kg

DRUGS (4)
  1. REMICADE [Suspect]
     Indication: CROHN'S DISEASE
     Route: 042
     Dates: start: 20101001
  2. ZOPICLONE [Concomitant]
     Route: 065
  3. IMURAN [Concomitant]
     Route: 065
  4. PREVACID [Concomitant]
     Route: 065

REACTIONS (1)
  - FISTULA [None]
